FAERS Safety Report 13925649 (Version 1)
Quarter: 2017Q3

REPORT INFORMATION
  Report Type: Report from Study
  Country: CA (occurrence: CA)
  Receive Date: 20170831
  Receipt Date: 20170831
  Transmission Date: 20171127
  Serious: Yes (Other)
  Sender: FDA-Public Use
  Company Number: CA-GILEAD-2016-0249255

PATIENT
  Age: 48 Year
  Sex: Female

DRUGS (2)
  1. SOFOSBUVIR W/VELPATASVIR [Suspect]
     Active Substance: SOFOSBUVIR\VELPATASVIR
     Indication: CHRONIC HEPATITIS C
     Dosage: 400 MG, QD
     Route: 048
     Dates: start: 20161125
  2. IBAVYR [Suspect]
     Active Substance: RIBAVIRIN
     Indication: CHRONIC HEPATITIS C
     Dosage: 1000 MG, QD
     Route: 048
     Dates: start: 20161125

REACTIONS (7)
  - Daydreaming [Unknown]
  - Feeling abnormal [Unknown]
  - Memory impairment [Unknown]
  - Fatigue [Unknown]
  - Sinusitis [Unknown]
  - Bronchitis [Unknown]
  - Frustration tolerance decreased [Unknown]
